FAERS Safety Report 15920933 (Version 2)
Quarter: 2019Q1

REPORT INFORMATION
  Report Type: Spontaneous
  Country: US (occurrence: US)
  Receive Date: 20190205
  Receipt Date: 20190211
  Transmission Date: 20190417
  Serious: Yes (Other)
  Sender: FDA-Public Use
  Company Number: US-AKORN PHARMACEUTICALS-2019AKN00162

PATIENT
  Age: 16 Year
  Sex: Male
  Weight: 79.37 kg

DRUGS (5)
  1. ^GUAIFECINE^ [Concomitant]
     Dosage: 1 MG, 2X/DAY
  2. ESCITALOPRAM [Concomitant]
     Active Substance: ESCITALOPRAM OXALATE
     Dosage: 20 MG, 1X/DAY IN THE EVENING
  3. MYORISAN [Suspect]
     Active Substance: ISOTRETINOIN
     Indication: ACNE
     Dosage: 10 MG, 1X/DAY AT BEDTIME
     Route: 048
     Dates: start: 20190105, end: 20190116
  4. CLONIDINE. [Concomitant]
     Active Substance: CLONIDINE
     Dosage: 0.1 MG, 2X/DAY
  5. METHYLPHENIDATE IR [Concomitant]
     Active Substance: METHYLPHENIDATE
     Dosage: 15 MG, 3X/DAY

REACTIONS (3)
  - Off label use [Recovered/Resolved]
  - Suicide attempt [Recovered/Resolved]
  - Suicidal ideation [Recovered/Resolved]

NARRATIVE: CASE EVENT DATE: 201901
